FAERS Safety Report 10102360 (Version 4)
Quarter: 2014Q2

REPORT INFORMATION
  Report Type: Spontaneous
  Country: BR (occurrence: BR)
  Receive Date: 20140424
  Receipt Date: 20140612
  Transmission Date: 20141212
  Serious: Yes (Other)
  Sender: FDA-Public Use
  Company Number: PHHY2014BR047570

PATIENT
  Age: 12 Year
  Sex: Female
  Weight: 69 kg

DRUGS (7)
  1. RITALINA [Suspect]
     Indication: ATTENTION DEFICIT/HYPERACTIVITY DISORDER
     Dosage: 1 DF, DAILY
     Route: 048
  2. RITALINA [Suspect]
     Indication: ABNORMAL BEHAVIOUR
  3. RITALIN LA [Suspect]
     Indication: PSYCHOMOTOR HYPERACTIVITY
     Dosage: 20 MG, DAILY
     Route: 048
     Dates: end: 201401
  4. RITALIN LA [Suspect]
     Indication: ABNORMAL BEHAVIOUR
     Dosage: 20 MG, BID
     Route: 048
  5. RITALIN LA [Suspect]
     Indication: SCHIZOPHRENIA
     Dosage: 40 MG, DAILY
     Route: 048
     Dates: start: 20140416
  6. RITALIN LA [Suspect]
     Indication: OFF LABEL USE
     Dosage: 40 MG, BID
     Route: 048
  7. NEOZINE [Concomitant]
     Dosage: UNK UKN, UNK

REACTIONS (14)
  - Schizophrenia [Unknown]
  - Crying [Recovering/Resolving]
  - Screaming [Recovering/Resolving]
  - Influenza [Unknown]
  - Constipation [Unknown]
  - Abnormal behaviour [Not Recovered/Not Resolved]
  - Incorrect dose administered [Unknown]
  - Agitation [Unknown]
  - Insomnia [Unknown]
  - Aggression [Unknown]
  - Disturbance in attention [Recovering/Resolving]
  - Pyrexia [Unknown]
  - Drug ineffective [Unknown]
  - Decreased appetite [Unknown]
